FAERS Safety Report 4327512-3 (Version None)
Quarter: 2004Q1

REPORT INFORMATION
  Report Type: 
  Country: None (occurrence: None)
  Receive Date: 20040325
  Receipt Date: 20040319
  Transmission Date: 20041129
  Serious: Yes (Disabling)
  Sender: FDA-Public Use
  Company Number: TCI2003A04644

PATIENT
  Age: 51 Year
  Sex: Female

DRUGS (9)
  1. LEUPLIN FOR INJECTION 3.75 (LEUPROLIDE ACEATE) INJECTION [Suspect]
     Indication: BREAST CANCER
     Dosage: TAP 144 SR 3.75,24 TIMES
     Route: 058
     Dates: start: 20020111, end: 20031017
  2. NOLVADEX [Suspect]
     Indication: POSTOPERATIVE CARE
     Dosage: 20 MG ( 20 MG 1 IN 1 D)
     Route: 048
     Dates: start: 20020111, end: 20031222
  3. DOGMATYL (SULPIRIDE) [Concomitant]
  4. EBASTEL (EBASTINE) TABLETS [Concomitant]
  5. SHIN CHUGAI ICHYOUYAKU (SUCRALFATE) TABLETS [Concomitant]
  6. S. TAC EVE (S. TAC EVE) (TABLETS) [Concomitant]
  7. COR TYZINE (NASAL DROPS (INCLUDING NASAL SPRAY) [Concomitant]
  8. PL (PL GRAN) POWDER [Concomitant]
  9. NAZAL (CHLOPHENAMINE MALEATE) (NASAL DROPS (INCLUDING NASAL SPRAY) [Concomitant]

REACTIONS (6)
  - COLOUR BLINDNESS [None]
  - DRUG INTERACTION [None]
  - GLAUCOMA [None]
  - MACULAR DEGENERATION [None]
  - RETINAL DEGENERATION [None]
  - VISUAL DISTURBANCE [None]
